FAERS Safety Report 11005789 (Version 1)
Quarter: 2015Q1

REPORT INFORMATION
  Report Type: Spontaneous
  Country: US (occurrence: None)
  Receive Date: 20150309
  Receipt Date: 20150309
  Transmission Date: 20150721
  Serious: Yes (Other)
  Sender: FDA-Public Use
  Company Number: 2014VER00080

PATIENT
  Age: 44 Year
  Sex: Male

DRUGS (4)
  1. PREDNISONE. [Concomitant]
     Active Substance: PREDNISONE
  2. LEVOTHYROXINE [Concomitant]
     Active Substance: LEVOTHYROXINE
  3. MYORISAN [Suspect]
     Active Substance: ISOTRETINOIN
     Indication: ACNE CYSTIC
     Dosage: 40 MG, 2X/DAY
     Dates: start: 20140418, end: 20140627
  4. CITALOPRAM [Concomitant]
     Active Substance: CITALOPRAM HYDROBROMIDE

REACTIONS (3)
  - Alanine aminotransferase increased [None]
  - Aspartate aminotransferase increased [None]
  - Arthritis [None]

NARRATIVE: CASE EVENT DATE: 2014
